FAERS Safety Report 11658846 (Version 2)
Quarter: 2015Q4

REPORT INFORMATION
  Report Type: Spontaneous
  Country: US (occurrence: US)
  Receive Date: 20151026
  Receipt Date: 20151027
  Transmission Date: 20160304
  Serious: No
  Sender: FDA-Public Use
  Company Number: GXBR2015US001990

PATIENT
  Sex: Female

DRUGS (1)
  1. OXISTAT [Suspect]
     Active Substance: OXICONAZOLE NITRATE
     Indication: TINEA PEDIS
     Dosage: UNK DF, UNK
     Route: 061

REACTIONS (1)
  - Pruritus [Not Recovered/Not Resolved]

NARRATIVE: CASE EVENT DATE: 20150828
